FAERS Safety Report 23996527 (Version 1)
Quarter: 2024Q2

REPORT INFORMATION
  Report Type: Spontaneous
  Country: US (occurrence: US)
  Receive Date: 20240620
  Receipt Date: 20240620
  Transmission Date: 20240716
  Serious: Yes (Hospitalization)
  Sender: FDA-Public Use
  Company Number: US-ANIPHARMA-2024-US-033521

PATIENT
  Sex: Female

DRUGS (1)
  1. CORTICOTROPIN [Suspect]
     Active Substance: CORTICOTROPIN
     Indication: Gout
     Dosage: 80 UNITS ONCE A WEEK
     Route: 058
     Dates: start: 202404

REACTIONS (2)
  - Gastrointestinal disorder [Unknown]
  - Hypertension [Unknown]
